FAERS Safety Report 13339332 (Version 2)
Quarter: 2018Q3

REPORT INFORMATION
  Report Type: Report from Study
  Country: US (occurrence: US)
  Receive Date: 20170315
  Receipt Date: 20180815
  Transmission Date: 20181010
  Serious: Yes (Death, Hospitalization)
  Sender: FDA-Public Use
  Company Number: US-KERYX BIOPHARMACEUTICALS, INC.-2017US002625

PATIENT
  Age: 35 Year
  Sex: Male

DRUGS (1)
  1. AURYXIA [Suspect]
     Active Substance: TETRAFERRIC TRICITRATE DECAHYDRATE
     Indication: HYPERPHOSPHATAEMIA
     Dosage: 9 G (9 TABLETS), QD
     Route: 048
     Dates: start: 20170214, end: 20170227

REACTIONS (2)
  - Chest pain [Unknown]
  - Myocardial infarction [Fatal]

NARRATIVE: CASE EVENT DATE: 20170227
